FAERS Safety Report 15406991 (Version 1)
Quarter: 2018Q3

REPORT INFORMATION
  Report Type: Spontaneous
  Country: US (occurrence: US)
  Receive Date: 20180919
  Receipt Date: 20180919
  Transmission Date: 20181010
  Serious: Yes (Disabling)
  Sender: FDA-Public Use
  Company Number: None

PATIENT
  Age: 87 Year
  Sex: Female
  Weight: 54.43 kg

DRUGS (12)
  1. DOXEPIN HCL 25 MG [Suspect]
     Active Substance: DOXEPIN HYDROCHLORIDE
     Indication: SKIN DISORDER
     Dosage: ?          QUANTITY:1 PILL;?
     Route: 048
     Dates: start: 20180821, end: 20180822
  2. MAGNESIUM OXIDE. [Concomitant]
     Active Substance: MAGNESIUM OXIDE
  3. PRAVASTATIN. [Concomitant]
     Active Substance: PRAVASTATIN
  4. WARFARIN [Concomitant]
     Active Substance: WARFARIN
  5. NITROSTAT [Concomitant]
     Active Substance: NITROGLYCERIN
  6. BUMETANIDE. [Concomitant]
     Active Substance: BUMETANIDE
  7. DIGOXIN. [Concomitant]
     Active Substance: DIGOXIN
  8. MULTIPLE VITAMIN [Concomitant]
     Active Substance: VITAMINS
  9. LEVOTHYROXINE. [Concomitant]
     Active Substance: LEVOTHYROXINE
  10. LOSARTAN. [Concomitant]
     Active Substance: LOSARTAN
  11. METOPROLOL SUCCINATE ER [Concomitant]
     Active Substance: METOPROLOL SUCCINATE
  12. POTASSIUM CHLORIDE ER [Concomitant]
     Active Substance: POTASSIUM CHLORIDE

REACTIONS (6)
  - Ill-defined disorder [None]
  - Mobility decreased [None]
  - Pruritus [None]
  - Dizziness [None]
  - Fatigue [None]
  - Asthenia [None]

NARRATIVE: CASE EVENT DATE: 20180821
